FAERS Safety Report 24054551 (Version 1)
Quarter: 2024Q3

REPORT INFORMATION
  Report Type: Spontaneous
  Country: US (occurrence: US)
  Receive Date: 20240705
  Receipt Date: 20240705
  Transmission Date: 20241016
  Serious: Yes (Other)
  Sender: PFIZER
  Company Number: US-PFIZER INC-202400204994

PATIENT
  Age: 39 Year
  Sex: Female

DRUGS (6)
  1. BINIMETINIB [Suspect]
     Active Substance: BINIMETINIB
     Indication: Metastases to liver
     Dosage: 45 MG TWICE DAILY
  2. BINIMETINIB [Suspect]
     Active Substance: BINIMETINIB
     Indication: Colorectal cancer
  3. ENCORAFENIB [Concomitant]
     Active Substance: ENCORAFENIB
     Indication: Metastases to liver
     Dosage: 300 MG, DAILY 2 CYCLES OF THE TRIPLET REGIMEN OVER THE COURSE OF 2 WEEKS
  4. ENCORAFENIB [Concomitant]
     Active Substance: ENCORAFENIB
     Indication: Colorectal cancer
  5. CETUXIMAB [Concomitant]
     Active Substance: CETUXIMAB
     Indication: Metastases to liver
     Dosage: 370 MG, WEEKLY 2 CYCLES OF THE TRIPLET REGIMEN OVER THE COURSE OF 2 WEEKS
  6. CETUXIMAB [Concomitant]
     Active Substance: CETUXIMAB
     Indication: Colorectal cancer

REACTIONS (1)
  - Heavy menstrual bleeding [Recovered/Resolved]
